FAERS Safety Report 21394257 (Version 2)
Quarter: 2025Q1

REPORT INFORMATION
  Report Type: Spontaneous
  Country: ES (occurrence: ES)
  Receive Date: 20220930
  Receipt Date: 20250305
  Transmission Date: 20250409
  Serious: Yes (Life-Threatening)
  Sender: TEVA
  Company Number: None

PATIENT
  Age: 18 Year
  Sex: Male
  Weight: 30 kg

DRUGS (2)
  1. AMOXICILLIN [Suspect]
     Active Substance: AMOXICILLIN
     Indication: Tonsillitis
     Route: 048
     Dates: start: 20220907
  2. NAPROXEN SODIUM [Suspect]
     Active Substance: NAPROXEN SODIUM
     Indication: Tonsillitis
     Route: 065
     Dates: start: 20220907

REACTIONS (1)
  - Anaphylactic reaction [Recovered/Resolved]

NARRATIVE: CASE EVENT DATE: 20220907
